FAERS Safety Report 6846956-9 (Version None)
Quarter: 2010Q3

REPORT INFORMATION
  Report Type: 
  Country: None (occurrence: None)
  Receive Date: 20100713
  Receipt Date: 20100705
  Transmission Date: 20110219
  Serious: Yes (Hospitalization)
  Sender: FDA-Public Use
  Company Number: 2010SP037274

PATIENT
  Age: 47 Year
  Sex: Female
  Weight: 53.4 kg

DRUGS (4)
  1. INTERFERON ALFA-2B RECOMBINANT (INTERFERON ALFA-2B) [Suspect]
     Indication: HEPATITIS C
     Dosage: 15 MCG
     Dates: start: 20100416
  2. RIBAVIRIN [Suspect]
     Indication: PRODUCT USED FOR UNKNOWN INDICATION
     Dosage: 400 MG; BID; PO
     Route: 048
     Dates: start: 20100416
  3. PARACETAMOL [Concomitant]
  4. SUBUTEX [Concomitant]

REACTIONS (3)
  - HAEMOPHILUS INFECTION [None]
  - HYPERSENSITIVITY [None]
  - PNEUMONIA STREPTOCOCCAL [None]
